FAERS Safety Report 25725526 (Version 2)
Quarter: 2025Q3

REPORT INFORMATION
  Report Type: Spontaneous
  Country: CN (occurrence: CN)
  Receive Date: 20250826
  Receipt Date: 20250903
  Transmission Date: 20251020
  Serious: Yes (Hospitalization, Disabling, Other)
  Sender: STRIDES
  Company Number: None

PATIENT
  Age: 59 Year
  Sex: Male

DRUGS (8)
  1. PREDNISOLONE [Suspect]
     Active Substance: PREDNISOLONE
     Indication: Viral corneal ulcer
     Route: 048
  2. PREDNISOLONE [Suspect]
     Active Substance: PREDNISOLONE
     Indication: Immunosuppressant drug therapy
  3. PREDNISOLONE [Suspect]
     Active Substance: PREDNISOLONE
     Indication: Iridocyclitis
  4. TACROLIMUS [Suspect]
     Active Substance: TACROLIMUS
     Indication: Viral corneal ulcer
     Route: 061
  5. PREDNISOLONE ACETATE [Suspect]
     Active Substance: PREDNISOLONE ACETATE
     Indication: Viral corneal ulcer
     Route: 061
  6. CYCLOSPORINE [Suspect]
     Active Substance: CYCLOSPORINE
     Indication: Viral corneal ulcer
     Route: 065
  7. PREDNISONE [Concomitant]
     Active Substance: PREDNISONE
     Indication: Viral corneal ulcer
     Route: 061
  8. GANCICLOVIR [Concomitant]
     Active Substance: GANCICLOVIR
     Indication: Viral corneal ulcer
     Route: 061

REACTIONS (5)
  - Post transplant lymphoproliferative disorder [Recovered/Resolved]
  - Blindness [Recovered/Resolved]
  - Epstein-Barr virus infection [Recovered/Resolved]
  - Eye infection viral [Recovered/Resolved]
  - Off label use [Unknown]
